FAERS Safety Report 26041380 (Version 1)
Quarter: 2025Q4

REPORT INFORMATION
  Report Type: Spontaneous
  Country: US (occurrence: US)
  Receive Date: 20251113
  Receipt Date: 20251113
  Transmission Date: 20260118
  Serious: No
  Sender: INSUD PHARMA
  Company Number: US-INSUD PHARMA-2510US09002

PATIENT

DRUGS (2)
  1. SLYND [Suspect]
     Active Substance: DROSPIRENONE
     Indication: Anovulatory cycle
     Dosage: UNK UNK, QD
     Route: 048
     Dates: start: 202509
  2. SLYND [Suspect]
     Active Substance: DROSPIRENONE
     Indication: Reproductive system disorder prophylaxis

REACTIONS (6)
  - Intermenstrual bleeding [Recovering/Resolving]
  - Poor quality product administered [Unknown]
  - Product solubility abnormal [Unknown]
  - Product physical consistency issue [Unknown]
  - Intentional dose omission [Unknown]
  - Product prescribing issue [Unknown]

NARRATIVE: CASE EVENT DATE: 20250101
